FAERS Safety Report 9682897 (Version 1)
Quarter: 2013Q4

REPORT INFORMATION
  Report Type: Spontaneous
  Country: US (occurrence: US)
  Receive Date: 20131112
  Receipt Date: 20131112
  Transmission Date: 20140711
  Serious: Yes (Other)
  Sender: FDA-Public Use
  Company Number: US-ASTELLAS-2013US011605

PATIENT
  Sex: Female

DRUGS (2)
  1. PROGRAF [Suspect]
     Indication: LIVER TRANSPLANT
     Dosage: 2 MG, UID/QD
     Route: 048
     Dates: start: 19940705
  2. CELLCEPT                           /01275102/ [Concomitant]
     Indication: LIVER TRANSPLANT
     Dosage: 2000 MG, UID/QD
     Route: 048
     Dates: start: 2008

REACTIONS (1)
  - Cyst [Not Recovered/Not Resolved]
